FAERS Safety Report 7267398-0 (Version None)
Quarter: 2011Q1

REPORT INFORMATION
  Report Type: 
  Country: None (occurrence: None)
  Receive Date: 20110201
  Receipt Date: 20101007
  Transmission Date: 20110831
  Serious: Yes (Life-Threatening, Hospitalization, Disabling, Other)
  Sender: FDA-Public Use
  Company Number: A0885460A

PATIENT
  Age: 84 Year
  Sex: Female

DRUGS (2)
  1. ARIXTRA [Suspect]
     Dosage: 2.5MG PER DAY
     Route: 058
     Dates: start: 20101003, end: 20101007
  2. UNSPECIFIED MEDICATIONS [Concomitant]

REACTIONS (1)
  - HAEMORRHAGE [None]
